FAERS Safety Report 8796273 (Version 3)
Quarter: 2012Q4

REPORT INFORMATION
  Report Type: 
  Country: BR (occurrence: BR)
  Receive Date: 20120919
  Receipt Date: 20121226
  Transmission Date: 20130627
  Serious: Yes (Death, Hospitalization)
  Sender: FDA-Public Use
  Company Number: BR-PFIZER INC-2012148712

PATIENT
  Age: 62 Year
  Sex: Male
  Weight: 40 kg

DRUGS (8)
  1. SUTENT [Suspect]
     Indication: RENAL CELL CARCINOMA
     Dosage: 50 mg, 1x/day (cycle 1), 4 weeks on/2 weeks off
     Route: 048
     Dates: start: 20120604, end: 20120719
  2. SUTENT [Suspect]
     Dosage: 50 mg, 1x/day (cycle 2), 4 weeks on/2 weeks off
     Route: 048
     Dates: start: 20120719, end: 20120815
  3. SUTENT [Suspect]
     Dosage: 50 mg, alternate day, third cycle
     Route: 048
     Dates: start: 20120907, end: 20121002
  4. METFORMIN [Concomitant]
     Indication: DIABETES
     Dosage: 850 mg, UNK
  5. GLIMEPIRIDE [Concomitant]
     Dosage: 10 mg, UNK
  6. INSULIN [Concomitant]
     Dosage: 10 IU, 2x/day
  7. NAPRIX [Concomitant]
     Indication: BLOOD PRESSURE
  8. INDAPEN [Concomitant]
     Indication: DIURETIC THERAPY

REACTIONS (14)
  - Disease progression [Fatal]
  - Renal cell carcinoma [Fatal]
  - Pneumonia [Unknown]
  - Diarrhoea [Recovered/Resolved]
  - Pain [Unknown]
  - Decreased appetite [Unknown]
  - Oral pain [Unknown]
  - Renal pain [Recovering/Resolving]
  - Vomiting [Not Recovered/Not Resolved]
  - Breath odour [Unknown]
  - Pyrexia [Recovered/Resolved]
  - Blood glucose decreased [Unknown]
  - Therapeutic response unexpected [Unknown]
  - Weight decreased [Unknown]
